FAERS Safety Report 20233061 (Version 3)
Quarter: 2022Q1

REPORT INFORMATION
  Report Type: Spontaneous
  Country: CZ (occurrence: CZ)
  Receive Date: 20211227
  Receipt Date: 20220207
  Transmission Date: 20220423
  Serious: Yes (Death, Life-Threatening, Hospitalization, Disabling, Other)
  Sender: FDA-Public Use
  Company Number: CZ-BIOGEN-2021BI01080235

PATIENT
  Age: 27 Year

DRUGS (5)
  1. TYSABRI [Suspect]
     Active Substance: NATALIZUMAB
     Indication: Multiple sclerosis
     Dosage: 106 INFUSIONS/ADMINISTRATIONS
     Route: 065
     Dates: end: 20191003
  2. CALCI CHEW [Concomitant]
     Indication: Product used for unknown indication
     Dosage: 500/400 IU 2 X 1
     Route: 065
  3. ALFACALCIDOL [Concomitant]
     Active Substance: ALFACALCIDOL
     Indication: Product used for unknown indication
     Route: 065
  4. OMEPRAZOLE [Concomitant]
     Active Substance: OMEPRAZOLE
     Indication: Product used for unknown indication
     Dosage: 20 MG D.P.
     Route: 065
  5. DIETARY SUPPLEMENT\HERBALS\MILK THISTLE [Concomitant]
     Active Substance: DIETARY SUPPLEMENT\HERBALS\MILK THISTLE
     Indication: Product used for unknown indication
     Route: 065

REACTIONS (2)
  - Multiple sclerosis relapse [Fatal]
  - Poor venous access [Unknown]

NARRATIVE: CASE EVENT DATE: 20211216
